FAERS Safety Report 4629276-2 (Version None)
Quarter: 2005Q2

REPORT INFORMATION
  Report Type: 
  Country: None (occurrence: None)
  Receive Date: 20050407
  Receipt Date: 20050329
  Transmission Date: 20051028
  Serious: Yes (Life-Threatening, Hospitalization, Other)
  Sender: FDA-Public Use
  Company Number: CA-JNJFOC-20031205638

PATIENT
  Sex: Female
  Weight: 100 kg

DRUGS (8)
  1. CAELYX [Suspect]
     Indication: BREAST CANCER
     Dosage: 5 CYCLES
     Route: 042
     Dates: start: 20030728, end: 20031124
  2. HERCEPTIN [Suspect]
     Indication: BREAST CANCER
     Route: 042
     Dates: start: 20030729, end: 20031215
  3. NAVELBINE [Suspect]
     Route: 042
     Dates: start: 20031222, end: 20031222
  4. HYDROCHLOROTHIAZIDE [Concomitant]
     Indication: HYPERTENSION
     Route: 049
  5. ATENOLOL [Concomitant]
     Indication: HYPERTENSION
     Route: 049
  6. DIAZEPAM [Concomitant]
     Indication: ANXIETY
     Route: 049
  7. CELEBREX [Concomitant]
     Indication: ARTHRITIS
  8. FUROSEMIDE [Concomitant]

REACTIONS (3)
  - CARDIAC FAILURE CONGESTIVE [None]
  - INFUSION RELATED REACTION [None]
  - PULMONARY OEDEMA [None]
